FAERS Safety Report 15359472 (Version 4)
Quarter: 2020Q3

REPORT INFORMATION
  Report Type: Spontaneous
  Country: RO (occurrence: RO)
  Receive Date: 20180907
  Receipt Date: 20200710
  Transmission Date: 20201102
  Serious: Yes (Congenital Anomaly, Other)
  Sender: FDA-Public Use
  Company Number: RO-AUROBINDO-AUR-APL-2018-044178

PATIENT
  Age: 5 Year
  Sex: Male
  Weight: 3 kg

DRUGS (12)
  1. COMBIVIR [Suspect]
     Active Substance: LAMIVUDINE\ZIDOVUDINE
     Dosage: 900 MILLIGRAM, ONCE A DAY
     Route: 064
  2. NEVIRAPINE. [Suspect]
     Active Substance: NEVIRAPINE
     Dosage: 200 MILLIGRAM, TWO TIMES A DAY, (400 MILLIGRAM DAILY; 1 COURSE)
     Route: 064
  3. COMBIVIR [Suspect]
     Active Substance: LAMIVUDINE\ZIDOVUDINE
     Dosage: 1 DOSAGE FORM, DAILY, TOTAL DAILY DOSE: 1 TAB/CAPS
     Route: 064
  4. NEVIRAPINE. [Suspect]
     Active Substance: NEVIRAPINE
     Indication: FOETAL EXPOSURE DURING PREGNANCY
     Dosage: 200 MILLIGRAM, TWO TIMES A DAY, (MATERNAL DOSE : 200 MG, BID)
     Route: 064
  5. MILK POWDER [Concomitant]
     Indication: PRODUCT USED FOR UNKNOWN INDICATION
     Dosage: UNK
     Route: 065
  6. ZIDOVUDINE. [Suspect]
     Active Substance: ZIDOVUDINE
     Indication: PRODUCT USED FOR UNKNOWN INDICATION
     Dosage: UNK
     Route: 064
  7. LAMIVUDINE. [Suspect]
     Active Substance: LAMIVUDINE
     Indication: PRODUCT USED FOR UNKNOWN INDICATION
     Dosage: UNK
     Route: 064
  8. COMBIVIR [Suspect]
     Active Substance: LAMIVUDINE\ZIDOVUDINE
     Indication: FOETAL EXPOSURE DURING PREGNANCY
     Dosage: MATERNAL DOSE: ZIDOVUDINE (300 MG BID, ORAL) LAMIVUDINE (150 MG BID, ORAL)
     Route: 064
  9. COMBIVIR [Suspect]
     Active Substance: LAMIVUDINE\ZIDOVUDINE
     Dosage: UNK,PEDIATRIC FORMULATION
     Route: 065
  10. PHENOXYMETHYLPENICILLIN POTASSIUM [Suspect]
     Active Substance: PENICILLIN V POTASSIUM
     Indication: PRODUCT USED FOR UNKNOWN INDICATION
     Dosage: UNK
     Route: 064
  11. COMBIVIR [Suspect]
     Active Substance: LAMIVUDINE\ZIDOVUDINE
     Indication: ANTIRETROVIRAL THERAPY
     Dosage: 1 DOSAGE FORM, DAILY, (1 DOSAGE FORMS DAILY; 1 COURSE)
     Route: 048
  12. LAMIVUDINE AND ZIDOVUDINE [Suspect]
     Active Substance: LAMIVUDINE\ZIDOVUDINE
     Indication: ANTIRETROVIRAL THERAPY
     Dosage: UNK UNK, ONCE A DAY, 1 COURSE
     Route: 064

REACTIONS (9)
  - Attention deficit hyperactivity disorder [Unknown]
  - Dandy-Walker syndrome [Not Recovered/Not Resolved]
  - Premature baby [Unknown]
  - Speech disorder developmental [Unknown]
  - Foetal exposure during pregnancy [Recovered/Resolved]
  - Ataxia [Unknown]
  - Neurodevelopmental disorder [Unknown]
  - Macrocephaly [Unknown]
  - Congenital central nervous system anomaly [Unknown]

NARRATIVE: CASE EVENT DATE: 2011
